FAERS Safety Report 5394072-8 (Version None)
Quarter: 2007Q3

REPORT INFORMATION
  Report Type: 
  Country: None (occurrence: None)
  Receive Date: 20070723
  Receipt Date: 20070226
  Transmission Date: 20080115
  Serious: No
  Sender: FDA-Public Use
  Company Number: A0640961A

PATIENT
  Age: 43 Year
  Sex: Female

DRUGS (3)
  1. AVANDIA [Suspect]
     Dosage: 2MG PER DAY
     Route: 048
     Dates: start: 20060301
  2. GLUCOPHAGE [Concomitant]
  3. ONE A DAY VITAMIN [Concomitant]

REACTIONS (1)
  - WEIGHT DECREASED [None]
